FAERS Safety Report 4284240-0 (Version None)
Quarter: 2004Q1

REPORT INFORMATION
  Report Type: 
  Country: None (occurrence: None)
  Receive Date: 20040203
  Receipt Date: 20040127
  Transmission Date: 20041129
  Serious: Yes (Hospitalization)
  Sender: FDA-Public Use
  Company Number: CH-ROCHE-357303

PATIENT
  Age: 42 Year
  Sex: Male

DRUGS (1)
  1. XENICAL [Suspect]
     Indication: OBESITY
     Route: 048
     Dates: start: 20020615

REACTIONS (2)
  - PANCREATIC NEOPLASM [None]
  - RENAL NEOPLASM [None]
